FAERS Safety Report 23838089 (Version 4)
Quarter: 2024Q3

REPORT INFORMATION
  Report Type: Spontaneous
  Country: US (occurrence: US)
  Receive Date: 20240509
  Receipt Date: 20240716
  Transmission Date: 20241016
  Serious: Yes (Other)
  Sender: PFIZER
  Company Number: None

PATIENT
  Age: 54 Year
  Sex: Female
  Weight: 56.236 kg

DRUGS (136)
  1. BUPIVACAINE HYDROCHLORIDE [Suspect]
     Active Substance: BUPIVACAINE HYDROCHLORIDE
     Dosage: UNK
     Route: 037
  2. PANTOPRAZOLE [Suspect]
     Active Substance: PANTOPRAZOLE
     Dosage: UNK
  3. PIROXICAM [Suspect]
     Active Substance: PIROXICAM
     Dosage: UNK
  4. KETOROLAC TROMETHAMINE [Suspect]
     Active Substance: KETOROLAC TROMETHAMINE
     Dosage: UNK
  5. HYDROXYZINE PAMOATE [Suspect]
     Active Substance: HYDROXYZINE PAMOATE
     Dosage: UNK
  6. LIDOCAINE HYDROCHLORIDE [Suspect]
     Active Substance: LIDOCAINE HYDROCHLORIDE
     Dosage: UNK
  7. HEPARIN SODIUM [Suspect]
     Active Substance: HEPARIN SODIUM
     Dosage: UNK
  8. HYDROMORPHONE HYDROCHLORIDE [Suspect]
     Active Substance: HYDROMORPHONE HYDROCHLORIDE
     Dosage: UNK
  9. ACETAMINOPHEN [Suspect]
     Active Substance: ACETAMINOPHEN
     Dosage: UNK
  10. ARTHROTEC [Suspect]
     Active Substance: DICLOFENAC SODIUM\MISOPROSTOL
     Dosage: UNK
     Route: 005
  11. DOXYCYCLINE HYCLATE [Suspect]
     Active Substance: DOXYCYCLINE HYCLATE
     Dosage: UNK
  12. METAXALONE [Suspect]
     Active Substance: METAXALONE
     Dosage: UNK
  13. SKELAXIN [Suspect]
     Active Substance: METAXALONE
     Dosage: UNK
  14. ONDANSETRON [Suspect]
     Active Substance: ONDANSETRON
     Dosage: UNK
  15. LORAZEPAM [Suspect]
     Active Substance: LORAZEPAM
     Dosage: UNK
  16. MEDROL [Suspect]
     Active Substance: METHYLPREDNISOLONE
     Dosage: UNK
  17. BUPRENORPHINE [Suspect]
     Active Substance: BUPRENORPHINE
     Dosage: UNK
  18. ABILIFY [Suspect]
     Active Substance: ARIPIPRAZOLE
     Dosage: UNK
  19. BEXTRA [Suspect]
     Active Substance: VALDECOXIB
     Dosage: UNK
  20. CYMBALTA [Suspect]
     Active Substance: DULOXETINE HYDROCHLORIDE
     Dosage: UNK
  21. DULOXETINE HYDROCHLORIDE [Suspect]
     Active Substance: DULOXETINE HYDROCHLORIDE
     Dosage: UNK
  22. ENOXAPARIN SODIUM [Suspect]
     Active Substance: ENOXAPARIN SODIUM
     Dosage: UNK
  23. MELATONIN [Suspect]
     Active Substance: MELATONIN
     Dosage: UNK
  24. MEXILETINE [Suspect]
     Active Substance: MEXILETINE
     Dosage: UNK
  25. OLANZAPINE [Suspect]
     Active Substance: OLANZAPINE
     Dosage: UNK
  26. RISPERIDONE [Suspect]
     Active Substance: RISPERIDONE
     Dosage: UNK
  27. ASPIRIN [Suspect]
     Active Substance: ASPIRIN
     Dosage: UNK
  28. ADAPALENE [Suspect]
     Active Substance: ADAPALENE
     Dosage: UNK
  29. ALENDRONATE SODIUM [Suspect]
     Active Substance: ALENDRONATE SODIUM
     Dosage: UNK
  30. ALPRAZOLAM [Suspect]
     Active Substance: ALPRAZOLAM
     Dosage: UNK
  31. AMITRIPTYLINE [Suspect]
     Active Substance: AMITRIPTYLINE
     Dosage: UNK
  32. AMOXICILLIN TRIHYDRATE [Suspect]
     Active Substance: AMOXICILLIN
     Dosage: UNK
  33. NUVIGIL [Suspect]
     Active Substance: ARMODAFINIL
     Dosage: 150 MG, 1X/DAY
     Dates: start: 20110930
  34. ASCORBIC ACID [Suspect]
     Active Substance: ASCORBIC ACID
     Dosage: UNK
  35. BACLOFEN [Suspect]
     Active Substance: BACLOFEN
     Indication: Pain
     Dosage: 10 MG
     Route: 037
  36. BACLOFEN [Suspect]
     Active Substance: BACLOFEN
     Dosage: 30 MG, AS NEEDED (10 MG, TID PRN)
     Route: 048
     Dates: start: 20111011
  37. BISACODYL [Suspect]
     Active Substance: BISACODYL
     Dosage: UNK
  38. CARBAMAZEPINE [Suspect]
     Active Substance: CARBAMAZEPINE
     Dosage: UNK
  39. CEPHALEXIN [Suspect]
     Active Substance: CEPHALEXIN
     Dosage: UNK
  40. CELEBREX [Suspect]
     Active Substance: CELECOXIB
     Dosage: UNK
  41. LIBRAX [Suspect]
     Active Substance: CHLORDIAZEPOXIDE HYDROCHLORIDE\CLIDINIUM BROMIDE
     Dosage: UNK
  42. CIMETIDINE [Suspect]
     Active Substance: CIMETIDINE
     Dosage: UNK
  43. CIPROFLOXACIN HYDROCHLORIDE [Suspect]
     Active Substance: CIPROFLOXACIN HYDROCHLORIDE
     Dosage: UNK
  44. IBUPROFEN [Suspect]
     Active Substance: IBUPROFEN
     Dosage: UNK
  45. EFFEXOR [Suspect]
     Active Substance: VENLAFAXINE HYDROCHLORIDE
     Dosage: 150 MG, 1X/DAY
     Dates: start: 20110930
  46. DILAUDID [Suspect]
     Active Substance: HYDROMORPHONE HYDROCHLORIDE
     Dosage: 5.996 MG, 20.0 MG/ML (DOSE WAS DECREASED 14 PERCENT) PER DAY
     Route: 037
     Dates: start: 20111028
  47. DILAUDID [Suspect]
     Active Substance: HYDROMORPHONE HYDROCHLORIDE
     Dosage: UNK, (10 MG/ML MINIMUM RATE)
     Route: 037
  48. NALTREXONE HYDROCHLORIDE [Suspect]
     Active Substance: NALTREXONE HYDROCHLORIDE
     Dosage: UNK
  49. ATIVAN [Suspect]
     Active Substance: LORAZEPAM
     Dosage: UNK
  50. NAMENDA [Suspect]
     Active Substance: MEMANTINE HYDROCHLORIDE
     Dosage: UNK
  51. LITHIUM [Suspect]
     Active Substance: LITHIUM
     Dosage: UNK
  52. TRAMADOL [Suspect]
     Active Substance: TRAMADOL\TRAMADOL HYDROCHLORIDE
     Dosage: UNK
  53. ZANAFLEX [Suspect]
     Active Substance: TIZANIDINE HYDROCHLORIDE
     Dosage: UNK
  54. ROXICODONE [Suspect]
     Active Substance: OXYCODONE HYDROCHLORIDE
     Dosage: UNK
  55. NUCYNTA [Suspect]
     Active Substance: TAPENTADOL HYDROCHLORIDE
     Dosage: UNK
  56. RANITIDINE [Suspect]
     Active Substance: RANITIDINE
     Dosage: UNK
  57. VICODIN [Suspect]
     Active Substance: ACETAMINOPHEN\HYDROCODONE BITARTRATE
     Dosage: UNK
  58. ULTRACET [Suspect]
     Active Substance: ACETAMINOPHEN\TRAMADOL HYDROCHLORIDE
     Dosage: UNK
  59. LEXAPRO [Suspect]
     Active Substance: ESCITALOPRAM OXALATE
     Dosage: UNK
  60. FENTORA [Suspect]
     Active Substance: FENTANYL CITRATE
     Dosage: UNK
  61. BACLOFEN [Suspect]
     Active Substance: BACLOFEN
     Dosage: 30 MG (10 MG, TID PRN)
     Route: 037
     Dates: start: 20111011
  62. LIMBREL [Suspect]
     Active Substance: DIETARY SUPPLEMENT\FLAVOCOXID
     Dosage: UNK
  63. TOPAMAX [Suspect]
     Active Substance: TOPIRAMATE
     Dosage: UNK
  64. PROLIXIN DECANOATE [Suspect]
     Active Substance: FLUPHENAZINE DECANOATE
     Dosage: UNK
  65. CYCLOBENZAPRINE [Suspect]
     Active Substance: CYCLOBENZAPRINE
     Dosage: UNK
  66. CEFIXIME [Suspect]
     Active Substance: CEFIXIME
     Dosage: UNK
     Route: 005
  67. TOPROL XL [Suspect]
     Active Substance: METOPROLOL SUCCINATE
     Dosage: UNK
  68. VITAMIN B3 [Suspect]
     Active Substance: NIACIN
     Dosage: UNK
  69. GABAPENTIN [Suspect]
     Active Substance: GABAPENTIN
     Dosage: UNK
  70. METHOCARBAMOL [Suspect]
     Active Substance: METHOCARBAMOL
     Dosage: UNK
  71. BACTRIM [Suspect]
     Active Substance: SULFAMETHOXAZOLE\TRIMETHOPRIM
     Dosage: UNK
  72. SULFAMETHOXAZOLE [Suspect]
     Active Substance: SULFAMETHOXAZOLE
     Dosage: UNK
  73. SERTRALINE HYDROCHLORIDE [Suspect]
     Active Substance: SERTRALINE HYDROCHLORIDE
     Dosage: UNK
  74. TORADOL [Suspect]
     Active Substance: KETOROLAC TROMETHAMINE
     Dosage: UNK
  75. VENLAFAXINE HYDROCHLORIDE [Suspect]
     Active Substance: VENLAFAXINE HYDROCHLORIDE
     Dosage: UNK
  76. FERROUS SULFATE [Suspect]
     Active Substance: FERROUS SULFATE
     Dosage: UNK
  77. QUETIAPINE [Suspect]
     Active Substance: QUETIAPINE
     Dosage: UNK
  78. MOBIC [Suspect]
     Active Substance: MELOXICAM
     Dosage: UNK
  79. VALIUM [Suspect]
     Active Substance: DIAZEPAM
     Dosage: UNK
  80. OXYCODONE [Suspect]
     Active Substance: OXYCODONE
     Dosage: UNK
  81. LAMICTAL [Suspect]
     Active Substance: LAMOTRIGINE
     Dosage: UNK
  82. HYOSCYAMINE [Suspect]
     Active Substance: HYOSCYAMINE
     Dosage: UNK
  83. ACETAMINOPHEN\HYDROCODONE [Suspect]
     Active Substance: ACETAMINOPHEN\HYDROCODONE
     Dosage: UNK
  84. METHYLPREDNISOLONE ACETATE [Suspect]
     Active Substance: METHYLPREDNISOLONE ACETATE
     Dosage: UNK
  85. ACETAMINOPHEN\PROPOXYPHENE NAPSYLATE [Suspect]
     Active Substance: ACETAMINOPHEN\PROPOXYPHENE NAPSYLATE
     Dosage: UNK
  86. NITROSTAT [Suspect]
     Active Substance: NITROGLYCERIN
     Dosage: UNK
  87. NEXIUM [Suspect]
     Active Substance: ESOMEPRAZOLE MAGNESIUM
     Dosage: UNK
  88. MILK OF MAGNESIA [Suspect]
     Active Substance: MAGNESIUM HYDROXIDE
     Dosage: UNK
  89. DULOXETINE HYDROCHLORIDE [Suspect]
     Active Substance: DULOXETINE HYDROCHLORIDE
     Dosage: UNK
  90. LODINE [Suspect]
     Active Substance: ETODOLAC
     Dosage: UNK
  91. DOCUSATE [Suspect]
     Active Substance: DOCUSATE
     Dosage: UNK
  92. ZANTAC [Suspect]
     Active Substance: RANITIDINE HYDROCHLORIDE
     Dosage: UNK
  93. TRAZODONE [Suspect]
     Active Substance: TRAZODONE HYDROCHLORIDE
     Dosage: UNK
  94. ORPHENADRINE [Suspect]
     Active Substance: ORPHENADRINE
     Dosage: UNK
  95. DICLOFENAC SODIUM [Suspect]
     Active Substance: DICLOFENAC\DICLOFENAC SODIUM
     Dosage: UNK
  96. HORIZANT [Suspect]
     Active Substance: GABAPENTIN ENACARBIL
     Dosage: UNK
  97. AMOXICILLIN [Suspect]
     Active Substance: AMOXICILLIN
     Dosage: UNK
  98. CELEXA [Suspect]
     Active Substance: CITALOPRAM HYDROBROMIDE
     Dosage: UNK
  99. PLAQUENIL [Suspect]
     Active Substance: HYDROXYCHLOROQUINE SULFATE
     Dosage: UNK
  100. CLARITHROMYCIN [Suspect]
     Active Substance: CLARITHROMYCIN
     Dosage: UNK
  101. PERCOCET [Suspect]
     Active Substance: ACETAMINOPHEN\OXYCODONE HYDROCHLORIDE
     Dosage: UNK
  102. SAVELLA [Suspect]
     Active Substance: MILNACIPRAN HYDROCHLORIDE
     Dosage: UNK
  103. DIBROMPROPAMIDINE ISETHIONATE\PROMETHAZINE HYDROCHLORIDE [Suspect]
     Active Substance: DIBROMPROPAMIDINE ISETHIONATE\PROMETHAZINE HYDROCHLORIDE
     Dosage: UNK
  104. VALACYCLOVIR HYDROCHLORIDE [Suspect]
     Active Substance: VALACYCLOVIR HYDROCHLORIDE
     Dosage: UNK
  105. ZOLOFT [Suspect]
     Active Substance: SERTRALINE HYDROCHLORIDE
     Dosage: UNK
  106. LIBRAX [Suspect]
     Active Substance: CHLORDIAZEPOXIDE HYDROCHLORIDE\CLIDINIUM BROMIDE
     Dosage: UNK
  107. TRANYLCYPROMINE [Suspect]
     Active Substance: TRANYLCYPROMINE
     Dosage: UNK
  108. NORTRIPTYLINE HYDROCHLORIDE [Suspect]
     Active Substance: NORTRIPTYLINE HYDROCHLORIDE
     Dosage: UNK
  109. DIVALPROEX SODIUM [Suspect]
     Active Substance: DIVALPROEX SODIUM
     Dosage: UNK
  110. PREDNISONE [Suspect]
     Active Substance: PREDNISONE
     Dosage: UNK
  111. MELOXICAM [Suspect]
     Active Substance: MELOXICAM
     Dosage: UNK
  112. MAGNESIUM CITRATE [Suspect]
     Active Substance: MAGNESIUM CITRATE
     Dosage: UNK
  113. LEVAQUIN [Suspect]
     Active Substance: LEVOFLOXACIN
     Dosage: UNK
  114. SEROQUEL [Suspect]
     Active Substance: QUETIAPINE FUMARATE
     Dosage: UNK
  115. SENNA LEAF [Suspect]
     Active Substance: SENNA LEAF
     Dosage: UNK
  116. TYLENOL [Suspect]
     Active Substance: ACETAMINOPHEN
     Dosage: UNK
  117. BIAXIN [Suspect]
     Active Substance: CLARITHROMYCIN
     Dosage: UNK
  118. DEPAKOTE [Suspect]
     Active Substance: DIVALPROEX SODIUM
     Dosage: UNK
  119. DIFLUCORTOLONE VALERATE\ISOCONAZOLE NITRATE [Suspect]
     Active Substance: DIFLUCORTOLONE VALERATE\ISOCONAZOLE NITRATE
     Dosage: UNK
  120. LACTATED RINGERS SOLUTION [Suspect]
     Active Substance: CALCIUM CHLORIDE\POTASSIUM CHLORIDE\SODIUM CHLORIDE\SODIUM LACTATE
     Dosage: UNK
  121. LIDODERM [Suspect]
     Active Substance: LIDOCAINE
     Dosage: UNK
  122. PROMETHAZINE [Suspect]
     Active Substance: PROMETHAZINE HYDROCHLORIDE
     Dosage: UNK
  123. TIZANIDINE HYDROCHLORIDE [Suspect]
     Active Substance: TIZANIDINE HYDROCHLORIDE
     Dosage: UNK
  124. XANAX [Suspect]
     Active Substance: ALPRAZOLAM
     Dosage: UNK
  125. FLUPHENAZINE [Suspect]
     Active Substance: FLUPHENAZINE
     Dosage: UNK
  126. CLONAZEPAM [Suspect]
     Active Substance: CLONAZEPAM
     Dosage: 0.5 MG, 2X/DAY
     Dates: start: 20110930
  127. MIRALAX [Suspect]
     Active Substance: POLYETHYLENE GLYCOL 3350
     Dosage: UNK
  128. TOPIRAMATE [Suspect]
     Active Substance: TOPIRAMATE
     Dosage: UNK
  129. NAPROXEN [Suspect]
     Active Substance: NAPROXEN
     Dosage: UNK
  130. ACTONEL [Suspect]
     Active Substance: RISEDRONATE SODIUM
     Dosage: UNK
     Route: 005
  131. PROLIXIN [Suspect]
     Active Substance: FLUPHENAZINE HYDROCHLORIDE
     Dosage: UNK
  132. BUTRANS [Suspect]
     Active Substance: BUPRENORPHINE
     Dosage: UNK
  133. AMBIEN [Suspect]
     Active Substance: ZOLPIDEM TARTRATE
     Dosage: UNK
  134. ARMODAFINIL [Suspect]
     Active Substance: ARMODAFINIL
     Dosage: 150 MG
  135. MODAFINIL [Suspect]
     Active Substance: MODAFINIL
     Dosage: 150 MG
  136. SENNA LEAF [Suspect]
     Active Substance: SENNA LEAF
     Dosage: UNK

REACTIONS (21)
  - Therapy non-responder [Unknown]
  - Anxiety disorder [Unknown]
  - Panic disorder [Unknown]
  - Arthralgia [Unknown]
  - Atrophy [Unknown]
  - Bursitis [Unknown]
  - Insomnia [Unknown]
  - Joint effusion [Unknown]
  - Myofascial pain syndrome [Unknown]
  - Osteoporosis [Unknown]
  - Social avoidant behaviour [Unknown]
  - Somatic symptom disorder [Unknown]
  - Substance-induced psychotic disorder [Unknown]
  - Asthenia [Unknown]
  - Back pain [Not Recovered/Not Resolved]
  - Contusion [Unknown]
  - Depression [Unknown]
  - Fall [Unknown]
  - Muscle spasms [Unknown]
  - Muscular weakness [Unknown]
  - Off label use [Unknown]

NARRATIVE: CASE EVENT DATE: 20111116
